FAERS Safety Report 19643933 (Version 5)
Quarter: 2021Q3

REPORT INFORMATION
  Report Type: Report from Study
  Country: FR (occurrence: FR)
  Receive Date: 20210730
  Receipt Date: 20210923
  Transmission Date: 20211014
  Serious: Yes (Death, Hospitalization)
  Sender: FDA-Public Use
  Company Number: FR-ROCHE-2880499

PATIENT
  Age: 61 Year
  Sex: Male
  Weight: 80 kg

DRUGS (19)
  1. OCRELIZUMAB. [Suspect]
     Active Substance: OCRELIZUMAB
     Indication: PRIMARY PROGRESSIVE MULTIPLE SCLEROSIS
     Dosage: NEXT INFUSION ON  18/OCT/2012, 25/MAR/2013, 08/APR/2013, 05/SEP/2013, 19/SEP/2013, 24/FEB/2014, 10/M
     Route: 042
     Dates: start: 20121004, end: 20160103
  2. PARACETAMOL [Concomitant]
     Active Substance: ACETAMINOPHEN
     Dosage: NEXT INFUSION ON  18/OCT/2012, 25/MAR/2013, 08/APR/2013, 05/SEP/2013, 19/SEP/2013, 24/FEB/2014, 10/M
     Dates: start: 20121004
  3. CEFTRIAXONE. [Concomitant]
     Active Substance: CEFTRIAXONE
     Dates: start: 20210720, end: 202107
  4. LAROXYL [Concomitant]
     Active Substance: AMITRIPTYLINE HYDROCHLORIDE
     Dates: start: 20121227
  5. OMEPRAZOLE. [Concomitant]
     Active Substance: OMEPRAZOLE
     Indication: DECREASED APPETITE
     Dates: start: 20170602
  6. OMEPRAZOLE. [Concomitant]
     Active Substance: OMEPRAZOLE
     Dates: start: 20170511, end: 20170601
  7. SPAGULAX [Concomitant]
     Active Substance: HERBALS\PLANTAGO OVATA SEED
     Indication: CONSTIPATION
     Dates: start: 20161110
  8. OCRELIZUMAB. [Suspect]
     Active Substance: OCRELIZUMAB
     Indication: PRIMARY PROGRESSIVE MULTIPLE SCLEROSIS
     Dosage: NEXT INFUSION ON  18/JAN/2016, 23/JUN/2016, 04/JUL/2016, 05/DEC/2016, 01/JUN/2017, 09/NOV/2017, 18/A
     Route: 042
     Dates: start: 20160104
  9. VESICARE [Concomitant]
     Active Substance: SOLIFENACIN SUCCINATE
     Indication: INCONTINENCE
     Dates: start: 20170511, end: 20190109
  10. DOLIPRANE [Concomitant]
     Active Substance: ACETAMINOPHEN
     Indication: BRONCHITIS
     Dates: start: 20200227
  11. METHYLPREDNISOLONE. [Concomitant]
     Active Substance: METHYLPREDNISOLONE
     Dosage: NEXT INFUSION ON  18/OCT/2012, 25/MAR/2013, 08/APR/2013, 05/SEP/2013, 19/SEP/2013, 24/FEB/2014, 10/M
     Dates: start: 20121004
  12. POLARAMINE [Concomitant]
     Active Substance: DEXCHLORPHENIRAMINE MALEATE
     Dosage: NEXT INFUSION ON  18/OCT/2012, 25/MAR/2013, 08/APR/2013, 05/SEP/2013, 19/SEP/2013, 24/FEB/2014, 10/M
     Dates: start: 20121004, end: 20121004
  13. VESICARE [Concomitant]
     Active Substance: SOLIFENACIN SUCCINATE
     Dates: start: 20190110
  14. EFFERALGAN CODEINE [Concomitant]
     Active Substance: ACETAMINOPHEN\CODEINE PHOSPHATE
     Indication: HEADACHE
     Dates: start: 20130522
  15. AUGMENTIN [Concomitant]
     Active Substance: AMOXICILLIN\CLAVULANATE POTASSIUM
     Dates: start: 202107
  16. DOLIPRANE [Concomitant]
     Active Substance: ACETAMINOPHEN
     Dates: start: 20121030, end: 20121107
  17. EDUCTYL [Concomitant]
     Active Substance: POTASSIUM BITARTRATE\SODIUM BICARBONATE
     Indication: CONSTIPATION
     Dosage: 1
     Dates: start: 20161110
  18. CETIRIZINE [Concomitant]
     Active Substance: CETIRIZINE HYDROCHLORIDE
     Dosage: NEXT INFUSION ON   25/MAR/2013, 08/APR/2013, 05/SEP/2013, 19/SEP/2013, 24/FEB/2014, 10/MAR/2014, 07/
     Dates: start: 20121018
  19. FORLAX [Concomitant]
     Active Substance: POLYETHYLENE GLYCOL 4000
     Indication: CONSTIPATION
     Dates: start: 20210311, end: 20210318

REACTIONS (1)
  - Hepatic neoplasm [Fatal]

NARRATIVE: CASE EVENT DATE: 20210719
